FAERS Safety Report 9501784 (Version 2)
Quarter: 2013Q4

REPORT INFORMATION
  Report Type: Spontaneous
  Country: US (occurrence: US)
  Receive Date: 20130905
  Receipt Date: 20131011
  Transmission Date: 20140711
  Serious: Yes (Other)
  Sender: FDA-Public Use
  Company Number: US-PFIZER INC-2013255689

PATIENT
  Sex: 0

DRUGS (2)
  1. LYRICA [Suspect]
     Dosage: 100 MG, UNK
  2. GLUCOTROL [Suspect]
     Dosage: 5 MG, UNK
     Route: 048

REACTIONS (3)
  - Lower respiratory tract infection [Recovered/Resolved]
  - Nasopharyngitis [Unknown]
  - Cough [Unknown]
